FAERS Safety Report 5527327-4 (Version None)
Quarter: 2007Q4

REPORT INFORMATION
  Report Type: 
  Country: None (occurrence: None)
  Receive Date: 20071128
  Receipt Date: 20071121
  Transmission Date: 20080405
  Serious: Yes (Other)
  Sender: FDA-Public Use
  Company Number: B0496373A

PATIENT
  Age: 54 Year
  Sex: Male

DRUGS (4)
  1. AUGMENTIN '250' [Suspect]
     Dosage: 1125MG PER DAY
     Route: 048
     Dates: start: 20071106, end: 20071107
  2. TEGRETOL [Concomitant]
     Dosage: 200MG PER DAY
     Route: 048
     Dates: start: 20040101
  3. ZIMOVANE [Concomitant]
     Dosage: 7.5MG PER DAY
     Route: 048
     Dates: start: 20040101
  4. CLOMIPRAMINE HCL [Concomitant]
     Dosage: 20MG PER DAY
     Route: 048
     Dates: start: 20040101

REACTIONS (5)
  - HYPERSENSITIVITY [None]
  - PRURITUS [None]
  - PYREXIA [None]
  - RASH GENERALISED [None]
  - RASH MACULO-PAPULAR [None]
